FAERS Safety Report 9038230 (Version 1)
Quarter: 2013Q1

REPORT INFORMATION
  Report Type: Spontaneous
  Country: US (occurrence: US)
  Receive Date: 20130129
  Receipt Date: 20130129
  Transmission Date: 20140127
  Serious: No
  Sender: FDA-Public Use
  Company Number: US-GLAXOSMITHKLINE-A0989931A

PATIENT
  Sex: Female

DRUGS (1)
  1. WELLBUTRIN XL [Suspect]
     Indication: PRODUCT USED FOR UNKNOWN INDICATION
     Route: 048

REACTIONS (15)
  - Decreased interest [Unknown]
  - Feelings of worthlessness [Unknown]
  - Anxiety [Unknown]
  - Depressed mood [Unknown]
  - Irritability [Unknown]
  - Asthenia [Unknown]
  - Fatigue [Unknown]
  - Disturbance in attention [Unknown]
  - Insomnia [Unknown]
  - Terminal insomnia [Unknown]
  - Hypersomnia [Unknown]
  - Pain [Unknown]
  - Headache [Unknown]
  - Abdominal pain upper [Unknown]
  - Restlessness [Unknown]
